FAERS Safety Report 8559935-0 (Version None)
Quarter: 2012Q3

REPORT INFORMATION
  Report Type: 
  Country: None (occurrence: None)
  Receive Date: 20120802
  Receipt Date: 20120731
  Transmission Date: 20120928
  Serious: Yes (Hospitalization)
  Sender: FDA-Public Use
  Company Number: PHEH2012US014942

PATIENT
  Sex: Male

DRUGS (6)
  1. CARBILVO [Concomitant]
     Dosage: UNK UKN, UNK
  2. COMTAN [Suspect]
     Dosage: 200 MG, TID
  3. METOPROLOL TARTRATE [Concomitant]
     Dosage: UNK UKN, UNK
  4. OMEPRAZOLE [Concomitant]
     Dosage: UNK UKN, UNK
  5. TINSULOSIA [Concomitant]
     Dosage: UNK UKN, UNK
  6. JANUVIA [Concomitant]
     Dosage: UNK UKN, UNK

REACTIONS (1)
  - CEREBROVASCULAR ACCIDENT [None]
